FAERS Safety Report 17962879 (Version 1)
Quarter: 2020Q2

REPORT INFORMATION
  Report Type: Spontaneous
  Country: US (occurrence: US)
  Receive Date: 20200630
  Receipt Date: 20200630
  Transmission Date: 20200714
  Serious: Yes (Other)
  Sender: FDA-Public Use
  Company Number: None

PATIENT
  Age: 45 Year
  Sex: Male
  Weight: 258 kg

DRUGS (22)
  1. HEPARIN INFUSION [Concomitant]
     Dates: start: 20200613, end: 20200614
  2. MOMETASONE-FORMOTEROL INH [Concomitant]
     Dates: start: 20200613, end: 20200614
  3. GUAIFENESIN-CODEINE PRN [Concomitant]
     Dates: start: 20200613, end: 20200625
  4. B COMPLEX W/ ZINC [Concomitant]
     Dates: start: 20200614, end: 20200620
  5. HYDROXYCHLOROQUINE [Concomitant]
     Active Substance: HYDROXYCHLOROQUINE
     Dates: start: 20200614, end: 20200616
  6. PROPOFOL INFUSION [Concomitant]
     Active Substance: PROPOFOL
     Dates: start: 20200614, end: 20200621
  7. DEXAMETHASONE. [Concomitant]
     Active Substance: DEXAMETHASONE
     Dates: start: 20200616, end: 20200620
  8. ACETAMINOPHEN PRN [Concomitant]
     Dates: start: 20200613, end: 20200624
  9. PANTOPRAZOLE/FAMOTIDINE [Concomitant]
     Dates: start: 20200615
  10. REMDESIVIR. [Suspect]
     Active Substance: REMDESIVIR
     Indication: COVID-19
     Route: 042
     Dates: start: 20200614, end: 20200616
  11. AZITHROMYCIN 500 MG [Concomitant]
     Active Substance: AZITHROMYCIN ANHYDROUS
     Dates: start: 20200613, end: 20200617
  12. CEFTRIAXONE 2 G [Concomitant]
     Dates: start: 20200613, end: 20200613
  13. CHLORTHALIDONE 25 MG [Concomitant]
     Active Substance: CHLORTHALIDONE
     Dates: start: 20200613, end: 20200616
  14. VERAPAMIL 360 MG [Concomitant]
     Dates: start: 20200614, end: 20200615
  15. FENTANYL IVP PRN [Concomitant]
     Dates: start: 20200614
  16. DEXMEDETOMIDINE INFUSION [Concomitant]
     Dates: start: 20200614, end: 20200616
  17. CISATRACURIUM INFUSION [Concomitant]
     Dates: start: 20200614, end: 20200616
  18. NICARDIPINE INFUSION [Concomitant]
     Dates: start: 20200615, end: 20200624
  19. CHLORDIAZEPOXIDE 100 MG [Concomitant]
     Dates: start: 20200615, end: 20200617
  20. METHYLPREDNISOLONE 40 MG [Concomitant]
     Dates: start: 20200613, end: 20200616
  21. LABETALOL IV PRN [Concomitant]
     Dates: start: 20200613
  22. SENNOSIDES. [Concomitant]
     Active Substance: SENNOSIDES
     Dates: start: 20200618

REACTIONS (2)
  - Glomerular filtration rate decreased [None]
  - Jaundice [None]

NARRATIVE: CASE EVENT DATE: 20200616
